FAERS Safety Report 15525040 (Version 1)
Quarter: 2018Q4

REPORT INFORMATION
  Report Type: Spontaneous
  Country: FR (occurrence: FR)
  Receive Date: 20181019
  Receipt Date: 20181019
  Transmission Date: 20190205
  Serious: Yes (Hospitalization, Other)
  Sender: FDA-Public Use
  Company Number: FR-PFIZER INC-2018414032

PATIENT
  Age: 28 Year
  Sex: Male
  Weight: 90 kg

DRUGS (2)
  1. DEPO-MEDROL [Suspect]
     Active Substance: METHYLPREDNISOLONE ACETATE
     Indication: B-CELL TYPE ACUTE LEUKAEMIA
     Dosage: 40 MG, 1X/DAY
     Route: 024
     Dates: start: 20180117, end: 20180124
  2. METHYLPREDNISOLONE MYLAN [METHYLPREDNISOLONE HEMISUCCINATE] [Suspect]
     Active Substance: METHYLPREDNISOLONE HEMISUCCINATE
     Indication: B-CELL TYPE ACUTE LEUKAEMIA
     Dosage: 80 MG, 1X/DAY
     Route: 041
     Dates: start: 20180116, end: 20180131

REACTIONS (2)
  - Adrenocortical insufficiency acute [Recovered/Resolved]
  - Steroid withdrawal syndrome [Recovered/Resolved]

NARRATIVE: CASE EVENT DATE: 20180202
